FAERS Safety Report 8581522-9 (Version None)
Quarter: 2012Q3

REPORT INFORMATION
  Report Type: 
  Country: None (occurrence: None)
  Receive Date: 20120809
  Receipt Date: 20120802
  Transmission Date: 20120928
  Serious: Yes (Hospitalization)
  Sender: FDA-Public Use
  Company Number: US-JNJFOC-20120801871

PATIENT
  Sex: Female
  Weight: 68.04 kg

DRUGS (2)
  1. XARELTO [Suspect]
     Indication: THROMBOSIS PROPHYLAXIS
     Route: 048
     Dates: start: 20120724, end: 20120730
  2. XARELTO [Suspect]
     Indication: KNEE ARTHROPLASTY
     Route: 048
     Dates: start: 20120724, end: 20120730

REACTIONS (3)
  - SEPSIS [None]
  - ACUTE ABDOMEN [None]
  - MUSCLE SPASMS [None]
